FAERS Safety Report 20520898 (Version 2)
Quarter: 2022Q1

REPORT INFORMATION
  Report Type: Spontaneous
  Country: IL (occurrence: IL)
  Receive Date: 20220225
  Receipt Date: 20220302
  Transmission Date: 20220424
  Serious: Yes (Disabling)
  Sender: FDA-Public Use
  Company Number: IL-009507513-2202ISR006132

PATIENT
  Sex: Male

DRUGS (1)
  1. MOLNUPIRAVIR [Suspect]
     Active Substance: MOLNUPIRAVIR
     Indication: COVID-19 treatment
     Dosage: UNK

REACTIONS (14)
  - General physical health deterioration [Not Recovered/Not Resolved]
  - Dysstasia [Not Recovered/Not Resolved]
  - Asthenia [Not Recovered/Not Resolved]
  - Cortisol decreased [Not Recovered/Not Resolved]
  - Diarrhoea [Recovering/Resolving]
  - Dizziness [Not Recovered/Not Resolved]
  - Fatigue [Not Recovered/Not Resolved]
  - Feeding disorder [Not Recovered/Not Resolved]
  - Gait inability [Unknown]
  - Nausea [Not Recovered/Not Resolved]
  - Weight decreased [Not Recovered/Not Resolved]
  - Presyncope [Not Recovered/Not Resolved]
  - Dysbiosis [Unknown]
  - Hypotension [Recovering/Resolving]

NARRATIVE: CASE EVENT DATE: 20220101
